FAERS Safety Report 4554607-1 (Version None)
Quarter: 2005Q1

REPORT INFORMATION
  Report Type: 
  Country: None (occurrence: None)
  Receive Date: 20050118
  Receipt Date: 20050107
  Transmission Date: 20050727
  Serious: Yes (Life-Threatening, Hospitalization, Disabling)
  Sender: FDA-Public Use
  Company Number: US-MERCK-0501USA00691

PATIENT
  Age: 36 Year
  Sex: Female

DRUGS (3)
  1. VIOXX [Suspect]
     Indication: ARTHRITIS
     Route: 048
     Dates: start: 20000101, end: 20020201
  2. [THERAPY UNSPECIFIED] [Concomitant]
     Indication: BLOOD PRESSURE
     Route: 065
  3. [THERAPY UNSPECIFIED] [Concomitant]
     Indication: ANTIDEPRESSANT THERAPY
     Route: 065

REACTIONS (7)
  - CARDIAC DISORDER [None]
  - CAROTID ARTERIAL EMBOLUS [None]
  - DYSPNOEA [None]
  - MUSCULOSKELETAL DISORDER [None]
  - OVARIAN DISORDER [None]
  - PULMONARY EMBOLISM [None]
  - UTERINE DISORDER [None]
